FAERS Safety Report 9774899 (Version 1)
Quarter: 2013Q4

REPORT INFORMATION
  Report Type: Spontaneous
  Country: US (occurrence: US)
  Receive Date: 20131220
  Receipt Date: 20131220
  Transmission Date: 20140711
  Serious: No
  Sender: FDA-Public Use
  Company Number: US-GLAXOSMITHKLINE-A1011671A

PATIENT
  Sex: Male

DRUGS (8)
  1. AVODART [Suspect]
     Indication: PROSTATIC HAEMORRHAGE
     Dosage: .5MG PER DAY
     Route: 048
     Dates: start: 2012, end: 201206
  2. FAMOTIDINE [Concomitant]
  3. ASPIRIN [Concomitant]
  4. ALLEGRA [Concomitant]
  5. VITAMIN B COMPLEX [Concomitant]
  6. VITAMIN B12 [Concomitant]
  7. VITAMIN C [Concomitant]
  8. VITAMIN D3 [Concomitant]

REACTIONS (2)
  - Erectile dysfunction [Recovered/Resolved]
  - Ejaculation disorder [Not Recovered/Not Resolved]
